FAERS Safety Report 8795963 (Version 3)
Quarter: 2012Q4

REPORT INFORMATION
  Report Type: 
  Country: US (occurrence: US)
  Receive Date: 20120919
  Receipt Date: 20121026
  Transmission Date: 20130627
  Serious: No
  Sender: FDA-Public Use
  Company Number: US-PFIZER INC-2012229845

PATIENT
  Age: 49 Year
  Sex: Female
  Weight: 99.77 kg

DRUGS (1)
  1. LYRICA [Suspect]
     Indication: ARTHRALGIA
     Dosage: 75 mg, 2x/day
     Dates: start: 2011, end: 201110

REACTIONS (3)
  - Neuropathy peripheral [Recovered/Resolved]
  - Sleep disorder [Unknown]
  - Pain [Unknown]
